FAERS Safety Report 22186291 (Version 1)
Quarter: 2023Q2

REPORT INFORMATION
  Report Type: Spontaneous
  Country: FR (occurrence: FR)
  Receive Date: 20230407
  Receipt Date: 20230407
  Transmission Date: 20230722
  Serious: Yes (Other)
  Sender: FDA-Public Use
  Company Number: FR-Merck KGaA-6028076

PATIENT
  Age: 64 Year
  Sex: Female

DRUGS (1)
  1. TAMOXIFEN [Suspect]
     Active Substance: TAMOXIFEN
     Indication: Breast cancer
     Dosage: 34.2 GRAM
     Route: 048

REACTIONS (2)
  - Retinopathy [Unknown]
  - Maculopathy [Unknown]
